FAERS Safety Report 5366940-4 (Version None)
Quarter: 2007Q2

REPORT INFORMATION
  Report Type: 
  Country: None (occurrence: None)
  Receive Date: 20070622
  Receipt Date: 20070125
  Transmission Date: 20071010
  Serious: No
  Sender: FDA-Public Use
  Company Number: US-ASTRAZENECA-2007UW01567

PATIENT
  Age: 74 Year
  Sex: Female

DRUGS (7)
  1. RHINOCORT [Suspect]
     Indication: NASAL CONGESTION
     Route: 045
     Dates: start: 20070101
  2. RHINOCORT [Suspect]
     Indication: EPISTAXIS
     Route: 045
     Dates: start: 20070101
  3. ZICAM [Concomitant]
  4. ADVAIR DISKUS 100/50 [Concomitant]
  5. SPIRIVA [Concomitant]
  6. LISINOPRIL [Concomitant]
  7. LEVOTHYROXINE SODIUM [Concomitant]
     Dosage: 0.1

REACTIONS (1)
  - NASOPHARYNGITIS [None]
